FAERS Safety Report 24528618 (Version 1)
Quarter: 2024Q4

REPORT INFORMATION
  Report Type: Spontaneous
  Country: US (occurrence: US)
  Receive Date: 20241021
  Receipt Date: 20241021
  Transmission Date: 20250114
  Serious: No
  Sender: APTAPHARMA INC.
  Company Number: US-AptaPharma Inc.-2163440

PATIENT

DRUGS (1)
  1. FLUOXETINE HYDROCHLORIDE [Suspect]
     Active Substance: FLUOXETINE HYDROCHLORIDE
     Indication: Initial insomnia

REACTIONS (2)
  - Tremor [Unknown]
  - Product prescribing issue [Unknown]
